FAERS Safety Report 10047749 (Version 2)
Quarter: 2014Q2

REPORT INFORMATION
  Report Type: Spontaneous
  Country: US (occurrence: None)
  Receive Date: 20140327
  Receipt Date: 20140410
  Transmission Date: 20141212
  Serious: Yes (Death, Hospitalization, Other)
  Sender: FDA-Public Use
  Company Number: UTC-043742

PATIENT
  Age: 4 Year
  Sex: Female
  Weight: 15 kg

DRUGS (2)
  1. REMODULIN [Suspect]
     Indication: PULMONARY HYPERTENSION
     Dosage: 72 UG/KG (0.05 UG/KG, 1 IN 1 MIN), INTRAVENOUS DRIP
     Dates: start: 20130422
  2. CIALIS (TADALAFIL) [Concomitant]

REACTIONS (4)
  - Bone marrow transplant [None]
  - Cardiac arrest [None]
  - Pulmonary hypertension [None]
  - Eosinophilia [None]
